FAERS Safety Report 8003304-9 (Version None)
Quarter: 2011Q4

REPORT INFORMATION
  Report Type: 
  Country: None (occurrence: None)
  Receive Date: 20111222
  Receipt Date: 20111219
  Transmission Date: 20120403
  Serious: Yes (Other)
  Sender: FDA-Public Use
  Company Number: PHHY2011DE64600

PATIENT
  Sex: Female
  Weight: 85 kg

DRUGS (14)
  1. ZOLEDRONOC ACID [Suspect]
     Dosage: 5 MG, ONCE YEARLY
     Route: 042
     Dates: start: 20100430
  2. VITAMIN D [Concomitant]
     Indication: OSTEOPOROSIS
     Dosage: 800/DAY
  3. IBUPROFEN [Concomitant]
     Indication: PAIN
     Dosage: UNK UKN, QD
  4. CALCIUM [Concomitant]
     Indication: OSTEOPOROSIS
     Dosage: 1000 MG, QD
  5. SPASCUPREEL [Concomitant]
     Indication: PAIN
     Dosage: UNK UKN, UNK
  6. ISOPTIN [Concomitant]
     Indication: HYPERTENSION
     Dosage: 2X1/2
     Route: 048
  7. DELIX PLUS [Concomitant]
     Indication: HYPERTENSION
     Dosage: UNK UKN, UNK
     Route: 048
  8. AVANDIA [Concomitant]
     Indication: DIABETES MELLITUS
     Dosage: 1-0-0
     Route: 048
  9. DOLOTEFFIN [Concomitant]
     Indication: MUSCULOSKELETAL DISORDER
     Dosage: 3 PER DAY
     Route: 048
  10. VESDIL 5 PLUS [Concomitant]
     Indication: HYPERTENSION
     Dosage: UNK UKN, UNK
     Route: 048
  11. BERLOSIN [Concomitant]
     Indication: PAIN
     Dosage: UNK UKN, PRN
  12. FALITHROM [Concomitant]
     Indication: CARDIAC DISORDER
     Dosage: UNK UKN, UNK
     Route: 048
  13. LEVOTHYROXINE SODIUM [Concomitant]
     Indication: THYROID DISORDER
     Dosage: 0-0-0-1 EVERY 2ND DAY
     Route: 048
  14. SIMVASTATIN [Concomitant]
     Indication: LIPIDS INCREASED
     Dosage: 0-0-0-1
     Route: 048

REACTIONS (2)
  - PAIN [None]
  - SPINAL COMPRESSION FRACTURE [None]
